FAERS Safety Report 8351559 (Version 3)
Quarter: 2012Q4

REPORT INFORMATION
  Report Type: 
  Country: US (occurrence: US)
  Receive Date: 20120124
  Receipt Date: 20121220
  Transmission Date: 20130627
  Serious: Yes (Hospitalization)
  Sender: FDA-Public Use
  Company Number: US-ACTELION-A-US2012-59913

PATIENT
  Age: 82 Year
  Sex: Male

DRUGS (2)
  1. TRACLEER [Suspect]
     Indication: PULMONARY ARTERIAL HYPERTENSION
     Dosage: UNK
     Route: 048
  2. VENTAVIS [Suspect]
     Indication: PULMONARY ARTERIAL HYPERTENSION
     Dosage: UNK
     Route: 055

REACTIONS (5)
  - Bacterial infection [Unknown]
  - Gout [Recovering/Resolving]
  - Joint swelling [Recovering/Resolving]
  - Influenza [Recovering/Resolving]
  - Rash [Recovering/Resolving]
